FAERS Safety Report 9198171 (Version 1)
Quarter: 2013Q1

REPORT INFORMATION
  Report Type: Spontaneous
  Country: US (occurrence: US)
  Receive Date: 20130329
  Receipt Date: 20130329
  Transmission Date: 20140127
  Serious: Yes (Hospitalization)
  Sender: FDA-Public Use
  Company Number: US-BIOGENIDEC-2011BI010015

PATIENT
  Age: 54 Year
  Sex: Female

DRUGS (1)
  1. AVONEX [Suspect]
     Indication: MULTIPLE SCLEROSIS
     Route: 030
     Dates: start: 20071012

REACTIONS (4)
  - Arthralgia [Recovered/Resolved]
  - Arthritis [Recovered/Resolved]
  - Muscle tightness [Unknown]
  - Muscular weakness [Not Recovered/Not Resolved]
